FAERS Safety Report 19006274 (Version 2)
Quarter: 2025Q2

REPORT INFORMATION
  Report Type: Spontaneous
  Country: US (occurrence: US)
  Receive Date: 20210315
  Receipt Date: 20250421
  Transmission Date: 20250716
  Serious: No
  Sender: SANOFI AVENTIS
  Company Number: US-SA-SAC20210311000668

PATIENT
  Age: 54 Year
  Sex: Female
  Weight: 65.77 kg

DRUGS (11)
  1. DUPIXENT [Suspect]
     Active Substance: DUPILUMAB
     Indication: Dermatitis atopic
     Dosage: 300 MG, QOW
     Route: 058
     Dates: start: 201909
  2. DUPIXENT [Suspect]
     Active Substance: DUPILUMAB
     Indication: Dermatitis atopic
     Dosage: 300 MG, QOW
     Route: 058
  3. CLONAZEPAM [Concomitant]
     Active Substance: CLONAZEPAM
  4. CYCLOBENZAPRINE [Concomitant]
     Active Substance: CYCLOBENZAPRINE
  5. GABAPENTIN [Concomitant]
     Active Substance: GABAPENTIN
  6. EZETIMIBE [Concomitant]
     Active Substance: EZETIMIBE
  7. QUETIAPINE FUMARATE [Concomitant]
     Active Substance: QUETIAPINE FUMARATE
  8. RISPERIDONE [Concomitant]
     Active Substance: RISPERIDONE
  9. VENLAFAXINE [Concomitant]
     Active Substance: VENLAFAXINE HYDROCHLORIDE
  10. CYANOCOBALAMIN [Concomitant]
     Active Substance: CYANOCOBALAMIN
  11. VITAMIN D3 [Concomitant]
     Active Substance: CHOLECALCIFEROL

REACTIONS (3)
  - Back disorder [Unknown]
  - Rash [Unknown]
  - Therapeutic response shortened [Unknown]

NARRATIVE: CASE EVENT DATE: 20210201
